FAERS Safety Report 8074839-8 (Version None)
Quarter: 2012Q1

REPORT INFORMATION
  Report Type: 
  Country: None (occurrence: None)
  Receive Date: 20120126
  Receipt Date: 20120118
  Transmission Date: 20120608
  Serious: Yes (Other)
  Sender: FDA-Public Use
  Company Number: BR-ASTRAZENECA-2012SE03865

PATIENT
  Age: 65 Year
  Sex: Female

DRUGS (1)
  1. SYMBICORT [Suspect]
     Indication: DYSPNOEA
     Dosage: 320/9 MCG
     Route: 055

REACTIONS (4)
  - CONFUSIONAL STATE [None]
  - METASTASES TO BONE [None]
  - HYPERTENSION [None]
  - LUNG NEOPLASM MALIGNANT [None]
